FAERS Safety Report 8320428-7 (Version None)
Quarter: 2012Q2

REPORT INFORMATION
  Report Type: 
  Country: None (occurrence: None)
  Receive Date: 20120426
  Receipt Date: 20120426
  Transmission Date: 20120825
  Serious: No
  Sender: FDA-Public Use
  Company Number: None

PATIENT
  Sex: Female
  Weight: 68.0396 kg

DRUGS (4)
  1. NORVASC [Concomitant]
  2. ESTRACE [Concomitant]
  3. ATENOLOL [Concomitant]
  4. LEVOTHYROXINE SODIUM [Suspect]
     Indication: THYROID FUNCTION TEST ABNORMAL
     Dosage: 1 TABLET DAILY DAILY BY MOUTH
     Route: 048
     Dates: start: 20120321

REACTIONS (2)
  - VITREOUS FLOATERS [None]
  - VISUAL IMPAIRMENT [None]
